FAERS Safety Report 8600967-1 (Version None)
Quarter: 2012Q3

REPORT INFORMATION
  Report Type: 
  Country: None (occurrence: None)
  Receive Date: 20120803
  Receipt Date: 20120727
  Transmission Date: 20120928
  Serious: Yes (Death)
  Sender: FDA-Public Use
  Company Number: JP-2012-15929

PATIENT
  Age: 81 Year
  Sex: Male
  Weight: 61 kg

DRUGS (11)
  1. DEPAKENE-R (VALPROATE SODIUM) TABLET [Concomitant]
  2. HANP (CARPERITIDE) INJECTION [Concomitant]
  3. PLAVIX [Concomitant]
  4. CRESTOR [Concomitant]
  5. CARVEDILOL [Concomitant]
  6. ALDACTONE [Concomitant]
  7. ASPIRIN [Concomitant]
  8. SAMSCA [Suspect]
     Indication: FLUID RETENTION
     Dosage: 7.5 MG MILLIGRAM(S), QAM, ORAL
     Route: 048
     Dates: start: 20120620, end: 20120621
  9. MAGMITT (MAGNESIUM OXIDE) TABLET [Concomitant]
  10. COVERSYL (PERINDOPRIL ERBUMINE) TABLET [Concomitant]
  11. LASIX [Concomitant]

REACTIONS (8)
  - RESPIRATORY DEPRESSION [None]
  - LOW CARDIAC OUTPUT SYNDROME [None]
  - DEPRESSED LEVEL OF CONSCIOUSNESS [None]
  - CARDIAC ARREST [None]
  - DECREASED VENTRICULAR PRELOAD [None]
  - VOLUME BLOOD DECREASED [None]
  - OXYGEN SATURATION DECREASED [None]
  - HYPOTENSION [None]
